FAERS Safety Report 7100136-0 (Version None)
Quarter: 2010Q4

REPORT INFORMATION
  Report Type: 
  Country: None (occurrence: None)
  Receive Date: 20101112
  Receipt Date: 20100419
  Transmission Date: 20110411
  Serious: No
  Sender: FDA-Public Use
  Company Number: A0856226A

PATIENT
  Age: 60 Year
  Sex: Female

DRUGS (13)
  1. CARVEDILOL [Suspect]
     Route: 065
  2. PLAVIX [Suspect]
     Indication: STENT PLACEMENT
     Dosage: 75MG PER DAY
     Route: 048
     Dates: start: 19991201
  3. LIPITOR [Suspect]
  4. VITAMIN D [Suspect]
  5. POTASSIUM CHLORIDE [Suspect]
  6. METFORMIN [Suspect]
  7. GLIPIZIDE [Suspect]
  8. ISOSORBIDE DINITRATE [Suspect]
  9. ETODOLAC [Suspect]
  10. METOPROLOL [Suspect]
  11. PRILOSEC [Suspect]
  12. APAP TAB [Suspect]
  13. DIPHENHYDRAMINE [Suspect]

REACTIONS (8)
  - ABDOMINAL PAIN UPPER [None]
  - CHEST PAIN [None]
  - DIARRHOEA [None]
  - DIZZINESS [None]
  - DYSPNOEA [None]
  - INSOMNIA [None]
  - NAUSEA [None]
  - PAIN IN EXTREMITY [None]
